FAERS Safety Report 7127838-4 (Version None)
Quarter: 2010Q4

REPORT INFORMATION
  Report Type: 
  Country: None (occurrence: None)
  Receive Date: 20101130
  Receipt Date: 20101111
  Transmission Date: 20110411
  Serious: Yes (Hospitalization)
  Sender: FDA-Public Use
  Company Number: IT-PFIZER INC-2010156848

PATIENT
  Age: 73 Year
  Sex: Male

DRUGS (7)
  1. AMIODARONE HCL [Suspect]
     Indication: ATRIAL FIBRILLATION
     Dosage: 200 MG, DAILY
     Route: 048
     Dates: start: 20091001, end: 20101015
  2. AMIODARONE HCL [Suspect]
     Dosage: 1000 MG, WEEKLY
     Route: 048
     Dates: start: 20101018, end: 20101020
  3. LASIX [Suspect]
     Indication: HYPERTENSION
     Dosage: 25 MG, DAILY
     Route: 048
     Dates: start: 20091001, end: 20101020
  4. SOLOSA [Concomitant]
     Indication: TYPE 2 DIABETES MELLITUS
     Dosage: 2MG DAILY
     Dates: start: 20101020
  5. COUMADIN [Concomitant]
     Indication: ATRIAL FIBRILLATION
     Dosage: 5MG, DAILY
     Dates: start: 20101020
  6. AMLODIPINE [Concomitant]
     Indication: HYPERTENSION
     Dosage: 5MG, DAILY
     Dates: start: 20100928, end: 20101020
  7. ZOFENOPRIL CALCIUM [Concomitant]
     Indication: HYPERTENSION
     Dosage: 42.5MG DAILY
     Dates: start: 20101020

REACTIONS (6)
  - ASTHENIA [None]
  - BLOOD CREATININE INCREASED [None]
  - BRADYCARDIA [None]
  - HAEMATOCRIT DECREASED [None]
  - HAEMOGLOBIN DECREASED [None]
  - HYPONATRAEMIA [None]
